FAERS Safety Report 13387682 (Version 9)
Quarter: 2018Q1

REPORT INFORMATION
  Report Type: Report from Study
  Country: US (occurrence: US)
  Receive Date: 20170330
  Receipt Date: 20180316
  Transmission Date: 20180508
  Serious: Yes (Hospitalization)
  Sender: FDA-Public Use
  Company Number: US-ACTELION-A-US2017-150392

PATIENT
  Age: 52 Year
  Sex: Female
  Weight: 56.69 kg

DRUGS (5)
  1. ADCIRCA [Concomitant]
     Active Substance: TADALAFIL
     Dosage: 40 MG, QD
  2. VELETRI [Suspect]
     Active Substance: EPOPROSTENOL
     Dosage: 10 NG/KG, PER MIN
     Route: 042
  3. VELETRI [Suspect]
     Active Substance: EPOPROSTENOL
     Indication: PULMONARY HYPERTENSION
     Dosage: 5 NG/KG, PER MIN
     Route: 042
  4. VELETRI [Suspect]
     Active Substance: EPOPROSTENOL
     Dosage: 21 NG/KG, PER MIN
     Route: 042
  5. VELETRI [Suspect]
     Active Substance: EPOPROSTENOL
     Dosage: 4 NG/KG, PER MIN
     Route: 042

REACTIONS (28)
  - Internal haemorrhage [Unknown]
  - Fatigue [Not Recovered/Not Resolved]
  - Decreased appetite [Unknown]
  - Myalgia [Unknown]
  - Dyspnoea [Unknown]
  - Ammonia increased [Recovering/Resolving]
  - Gastrooesophageal reflux disease [Recovering/Resolving]
  - Catheter management [Unknown]
  - Oesophageal haemorrhage [Unknown]
  - Nausea [Recovering/Resolving]
  - Hepatic failure [Unknown]
  - Flushing [Unknown]
  - Anxiety [Unknown]
  - Vomiting [Recovered/Resolved]
  - Liver transplant [Unknown]
  - Headache [Unknown]
  - Emotional distress [Not Recovered/Not Resolved]
  - Sepsis [Unknown]
  - Pain [Unknown]
  - Weight decreased [Unknown]
  - Liver disorder [Unknown]
  - Diarrhoea [Recovering/Resolving]
  - Jaw disorder [Recovering/Resolving]
  - Hand-eye coordination impaired [Recovering/Resolving]
  - Speech disorder [Recovering/Resolving]
  - Oedema peripheral [Unknown]
  - Oesophageal perforation [Unknown]
  - Pyrexia [Unknown]
